FAERS Safety Report 6551519-9 (Version None)
Quarter: 2010Q1

REPORT INFORMATION
  Report Type: 
  Country: None (occurrence: None)
  Receive Date: 20100122
  Receipt Date: 20090625
  Transmission Date: 20100710
  Serious: Yes (Hospitalization)
  Sender: FDA-Public Use
  Company Number: WAES 0906USA05366

PATIENT
  Sex: Female

DRUGS (1)
  1. INVANZ [Suspect]
     Indication: DIABETIC FOOT INFECTION

REACTIONS (1)
  - CONVULSION [None]
